FAERS Safety Report 12664432 (Version 2)
Quarter: 2016Q3

REPORT INFORMATION
  Report Type: Report from Study
  Country: US (occurrence: US)
  Receive Date: 20160818
  Receipt Date: 20160819
  Transmission Date: 20161109
  Serious: No
  Sender: FDA-Public Use
  Company Number: PHEH2016US020855

PATIENT
  Age: 79 Year
  Sex: Male
  Weight: 122 kg

DRUGS (3)
  1. SANDOSTATIN [Concomitant]
     Active Substance: OCTREOTIDE ACETATE
     Indication: PRODUCT USED FOR UNKNOWN INDICATION
     Route: 065
  2. AFINITOR [Suspect]
     Active Substance: EVEROLIMUS
     Indication: NEOPLASM
     Dosage: 5 MG, BID (2TQD)
     Route: 048
     Dates: start: 20160728
  3. AFINITOR [Suspect]
     Active Substance: EVEROLIMUS
     Dosage: UNK
     Route: 048
     Dates: start: 20160804, end: 20160815

REACTIONS (9)
  - Weight decreased [Not Recovered/Not Resolved]
  - Temperature intolerance [Unknown]
  - Drug intolerance [Unknown]
  - Gingival pain [Unknown]
  - Insomnia [Unknown]
  - Fatigue [Unknown]
  - Toothache [Unknown]
  - Nervous system disorder [Unknown]
  - Poor quality sleep [Unknown]

NARRATIVE: CASE EVENT DATE: 20160804
